FAERS Safety Report 5892817-1 (Version None)
Quarter: 2008Q3

REPORT INFORMATION
  Report Type: 
  Country: None (occurrence: None)
  Receive Date: 20080923
  Receipt Date: 20080912
  Transmission Date: 20090109
  Serious: Yes (Hospitalization)
  Sender: FDA-Public Use
  Company Number: NL-AMGEN-US295223

PATIENT
  Age: 54 Year
  Sex: Male
  Weight: 66 kg

DRUGS (8)
  1. ENBREL [Suspect]
     Indication: RHEUMATOID ARTHRITIS
     Route: 058
     Dates: start: 20050101, end: 20080620
  2. PREDNISONE TAB [Concomitant]
     Indication: RHEUMATOID ARTHRITIS
     Dates: start: 19920101
  3. CALCIUM GLUCONATE [Concomitant]
  4. FOLIC ACID [Concomitant]
     Indication: RHEUMATOID ARTHRITIS
  5. ACTONEL [Concomitant]
     Indication: OSTEOPOROSIS
     Dates: start: 20020101
  6. METHOTREXATE [Concomitant]
     Indication: RHEUMATOID ARTHRITIS
     Route: 058
     Dates: start: 19920101, end: 19950101
  7. METHOTREXATE [Concomitant]
     Route: 058
     Dates: start: 19970101
  8. NAPROXEN [Concomitant]
     Indication: RHEUMATOID ARTHRITIS
     Dosage: 2X 250 MG

REACTIONS (4)
  - DEHYDRATION [None]
  - FUNGAL INFECTION [None]
  - GASTROENTERITIS ESCHERICHIA COLI [None]
  - TRANSMISSION OF AN INFECTIOUS AGENT VIA A MEDICINAL PRODUCT [None]
